FAERS Safety Report 16036943 (Version 1)
Quarter: 2019Q1

REPORT INFORMATION
  Report Type: Spontaneous
  Country: US (occurrence: US)
  Receive Date: 20190305
  Receipt Date: 20190305
  Transmission Date: 20190418
  Serious: Yes (Hospitalization, Other)
  Sender: FDA-Public Use
  Company Number: US-ASTRAZENECA-2016SE87845

PATIENT
  Age: 54 Year
  Sex: Male

DRUGS (5)
  1. BRILINTA [Suspect]
     Active Substance: TICAGRELOR
     Indication: MYOCARDIAL INFARCTION
     Route: 048
     Dates: start: 2014, end: 2018
  2. CRESTOR [Suspect]
     Active Substance: ROSUVASTATIN CALCIUM
     Indication: BLOOD CHOLESTEROL INCREASED
     Route: 048
  3. NEXIUM [Suspect]
     Active Substance: ESOMEPRAZOLE MAGNESIUM
     Indication: DYSPEPSIA
     Dosage: 20.0MG UNKNOWN
     Route: 048
  4. BRILINTA [Suspect]
     Active Substance: TICAGRELOR
     Indication: ACUTE CORONARY SYNDROME
     Route: 048
     Dates: start: 2014, end: 2018
  5. METOPROLOL. [Suspect]
     Active Substance: METOPROLOL
     Indication: MYOCARDIAL INFARCTION
     Route: 048
     Dates: start: 2014, end: 2018

REACTIONS (16)
  - Myalgia [Recovered/Resolved]
  - Presyncope [Recovered/Resolved]
  - Vascular occlusion [Not Recovered/Not Resolved]
  - Cardiac arrest [Recovered/Resolved]
  - Back pain [Unknown]
  - Loss of consciousness [Recovered/Resolved]
  - Blood pressure decreased [Recovered/Resolved]
  - Product use issue [Recovered/Resolved]
  - Dizziness [Recovered/Resolved]
  - Blood cholesterol increased [Recovered/Resolved]
  - Product dose omission [Recovered/Resolved]
  - Myocardial infarction [Recovered/Resolved]
  - Contusion [Unknown]
  - Sleep apnoea syndrome [Not Recovered/Not Resolved]
  - Fall [Recovered/Resolved]
  - Dyspepsia [Recovering/Resolving]

NARRATIVE: CASE EVENT DATE: 2014
